FAERS Safety Report 20454373 (Version 1)
Quarter: 2022Q1

REPORT INFORMATION
  Report Type: Spontaneous
  Country: US (occurrence: None)
  Receive Date: 20220209
  Receipt Date: 20220209
  Transmission Date: 20220423
  Serious: Yes (Hospitalization, Disabling, Other)
  Sender: FDA-Public Use
  Company Number: None

PATIENT
  Age: 52 Year
  Sex: Male

DRUGS (16)
  1. TREMFYA [Suspect]
     Active Substance: GUSELKUMAB
     Indication: Psoriasis
     Dosage: OTHER FREQUENCY : Q 8 WEEKS;?
     Route: 058
     Dates: start: 202109, end: 202111
  2. OXYCODONE [Concomitant]
     Active Substance: OXYCODONE
  3. PROMETHAZINE [Concomitant]
     Active Substance: PROMETHAZINE HYDROCHLORIDE
  4. METOPROLOL [Concomitant]
     Active Substance: METOPROLOL
  5. LEVETIRACETAM [Concomitant]
     Active Substance: LEVETIRACETAM
  6. CLONIDINE [Concomitant]
     Active Substance: CLONIDINE
  7. NIFEDIPINE [Concomitant]
  8. BUTALBITAL, ACETAMINOPHEN, AND CAFFEINE [Concomitant]
     Active Substance: ACETAMINOPHEN\BUTALBITAL\CAFFEINE
  9. GABAPENTIN [Concomitant]
     Active Substance: GABAPENTIN
  10. ALBUTEROL [Concomitant]
  11. ATORVASTATIN [Concomitant]
     Active Substance: ATORVASTATIN
  12. CLOBETASOL [Concomitant]
     Active Substance: CLOBETASOL
  13. CLOPIDOGREL [Concomitant]
     Active Substance: CLOPIDOGREL BISULFATE
  14. HYDROCORTISONE [Concomitant]
     Active Substance: HYDROCORTISONE
  15. PROMETHAZINE [Concomitant]
     Active Substance: PROMETHAZINE HYDROCHLORIDE
  16. VALSARTAN [Concomitant]
     Active Substance: VALSARTAN

REACTIONS (3)
  - Seizure [None]
  - Hydrocephalus [None]
  - Therapy cessation [None]

NARRATIVE: CASE EVENT DATE: 20220101
